FAERS Safety Report 5820204-0 (Version None)
Quarter: 2008Q3

REPORT INFORMATION
  Report Type: 
  Country: None (occurrence: None)
  Receive Date: 20080724
  Receipt Date: 20080718
  Transmission Date: 20090109
  Serious: Yes (Life-Threatening, Hospitalization)
  Sender: FDA-Public Use
  Company Number: PHBS2008US05173

PATIENT
  Age: 75 Year
  Sex: Female

DRUGS (2)
  1. VALSARTAN [Suspect]
     Dosage: 80 MG, (HANDFUL)
  2. AMLODIPINE [Suspect]
     Dosage: 10 MG, (HANDFUL)

REACTIONS (29)
  - ACIDOSIS [None]
  - BLOOD BICARBONATE DECREASED [None]
  - BLOOD LACTIC ACID INCREASED [None]
  - BODY TEMPERATURE INCREASED [None]
  - CARDIAC INDEX DECREASED [None]
  - COLITIS [None]
  - COLITIS ISCHAEMIC [None]
  - DEEP VEIN THROMBOSIS [None]
  - DEPRESSED MOOD [None]
  - DRUG ADMINISTRATION ERROR [None]
  - DRUG TOXICITY [None]
  - DYSPNOEA [None]
  - ELECTROCARDIOGRAM QT PROLONGED [None]
  - GASTROINTESTINAL HAEMORRHAGE [None]
  - HYPERDYNAMIC LEFT VENTRICLE [None]
  - HYPERGLYCAEMIA [None]
  - HYPOCALCAEMIA [None]
  - HYPOKALAEMIA [None]
  - HYPOTENSION [None]
  - INTENTIONAL OVERDOSE [None]
  - PANCREATITIS [None]
  - PNEUMONIA [None]
  - PULMONARY ARTERIAL WEDGE PRESSURE INCREASED [None]
  - SUICIDE ATTEMPT [None]
  - TACHYCARDIA [None]
  - THROMBOCYTOPENIA [None]
  - URINARY TRACT INFECTION [None]
  - VASCULAR RESISTANCE SYSTEMIC DECREASED [None]
  - VOMITING [None]
